FAERS Safety Report 9708927 (Version 1)
Quarter: 2013Q4

REPORT INFORMATION
  Report Type: Spontaneous
  Country: NL (occurrence: NL)
  Receive Date: 20131125
  Receipt Date: 20131125
  Transmission Date: 20140711
  Serious: Yes (Other)
  Sender: FDA-Public Use
  Company Number: NL-ACTAVIS-2013-21063

PATIENT
  Age: 14 Year
  Sex: Female

DRUGS (2)
  1. MINOCYCLINE (UNKNOWN) [Suspect]
     Indication: ACNE
     Dosage: 50 MG, BID
     Route: 065
  2. DIANE [Concomitant]
     Indication: ACNE
     Dosage: 2/0.035 MG,UNK
     Route: 065

REACTIONS (1)
  - Autoimmune hepatitis [Recovered/Resolved]
